FAERS Safety Report 14612734 (Version 1)
Quarter: 2018Q1

REPORT INFORMATION
  Report Type: Spontaneous
  Country: US (occurrence: US)
  Receive Date: 20180308
  Receipt Date: 20180308
  Transmission Date: 20180509
  Serious: No
  Sender: FDA-Public Use
  Company Number: US-ROCHE-2085153

PATIENT
  Sex: Female

DRUGS (2)
  1. OCREVUS [Suspect]
     Active Substance: OCRELIZUMAB
     Dosage: SPLIT DOSE ;ONGOING: UNKNOWN
     Route: 042
     Dates: start: 20171114
  2. OCREVUS [Suspect]
     Active Substance: OCRELIZUMAB
     Indication: MULTIPLE SCLEROSIS
     Dosage: SPLIT DOSE ;ONGOING: UNKNOWN
     Route: 042
     Dates: start: 20170831

REACTIONS (1)
  - Influenza [Unknown]
